FAERS Safety Report 7764845-2 (Version None)
Quarter: 2011Q3

REPORT INFORMATION
  Report Type: 
  Country: None (occurrence: None)
  Receive Date: 20110921
  Receipt Date: 20110920
  Transmission Date: 20111222
  Serious: Yes (Congenital Anomaly, Other)
  Sender: FDA-Public Use
  Company Number: US-PFIZER INC-2011105676

PATIENT
  Sex: Female
  Weight: 3.7 kg

DRUGS (1)
  1. SERTRALINE HYDROCHLORIDE [Suspect]
     Dosage: 100 MG
     Route: 064
     Dates: start: 20100101, end: 20101201

REACTIONS (3)
  - TALIPES [None]
  - FOOT DEFORMITY [None]
  - MATERNAL EXPOSURE DURING PREGNANCY [None]
